FAERS Safety Report 8891136 (Version 1)
Quarter: 2012Q4

REPORT INFORMATION
  Report Type: 
  Country: FR (occurrence: FR)
  Receive Date: 20121107
  Receipt Date: 20121107
  Transmission Date: 20130627
  Serious: Yes (Hospitalization)
  Sender: FDA-Public Use
  Company Number: FR-PFIZER INC-2012277561

PATIENT
  Age: 73 Year
  Sex: Female

DRUGS (9)
  1. TRIATEC [Suspect]
     Indication: HYPERTENSION ARTERIAL
     Dosage: 5 mg, 2x/day
     Route: 048
     Dates: end: 20120625
  2. VALACICLOVIR [Suspect]
     Indication: DRUG USE FOR UNKNOWN INDICATION
     Dosage: UNK, 2x/day
     Route: 048
     Dates: end: 20120621
  3. CLAMOXYL [Suspect]
     Indication: BRONCHITIS
     Dosage: UNK
     Route: 048
     Dates: start: 201205, end: 201205
  4. MABTHERA [Suspect]
     Indication: MALT LYMPHOMA
     Dosage: UNK
     Route: 042
     Dates: start: 20110915, end: 20120117
  5. ATENOLOL [Concomitant]
     Dosage: UNK
  6. CARTEOL [Concomitant]
     Dosage: UNK
  7. ARTELAC [Concomitant]
     Dosage: UNK
  8. DEXAMETHASONE SODIUM PHOSPHATE [Concomitant]
     Dosage: UNK
  9. FERROUS SULFATE [Concomitant]
     Dosage: UNK
     Dates: start: 201206

REACTIONS (3)
  - Leukopenia [Not Recovered/Not Resolved]
  - Anaemia [Not Recovered/Not Resolved]
  - Pyrexia [Recovered/Resolved]
